FAERS Safety Report 6480465-4 (Version None)
Quarter: 2009Q4

REPORT INFORMATION
  Report Type: 
  Country: None (occurrence: None)
  Receive Date: 20091202
  Receipt Date: 20091117
  Transmission Date: 20100525
  Serious: Yes (Death)
  Sender: FDA-Public Use
  Company Number: AE 2009-150

PATIENT
  Sex: Male

DRUGS (16)
  1. FAZACLO ODT [Suspect]
     Indication: SCHIZOPHRENIA
     Dosage: 400MG DAILY PO
     Route: 048
     Dates: start: 20090324, end: 20091019
  2. RESTORIL [Concomitant]
  3. ALBUTEROL SULATE [Concomitant]
  4. HALDOL [Concomitant]
  5. MOTRIN [Concomitant]
  6. COMBIVENT [Concomitant]
  7. SEROQUEL [Concomitant]
  8. RISPERDAL [Concomitant]
  9. DEPAKOTE [Concomitant]
  10. WELLBUTRIN [Concomitant]
  11. TYLENOL DSS (DOCUSATE) [Concomitant]
  12. LISINOPRIL [Concomitant]
  13. PREVACID [Concomitant]
  14. METAMUCIL [Concomitant]
  15. AMITIZA [Concomitant]
  16. MYLANTA [Concomitant]

REACTIONS (1)
  - MYOCARDIAL INFARCTION [None]
